FAERS Safety Report 7586759-3 (Version None)
Quarter: 2011Q3

REPORT INFORMATION
  Report Type: 
  Country: None (occurrence: None)
  Receive Date: 20110701
  Receipt Date: 20110601
  Transmission Date: 20111222
  Serious: Yes (Other)
  Sender: FDA-Public Use
  Company Number: JP-JNJFOC-20110607415

PATIENT
  Sex: Female

DRUGS (4)
  1. DOXIL [Suspect]
     Route: 042
  2. DOXIL [Suspect]
     Route: 042
  3. DOXIL [Suspect]
     Route: 042
  4. DOXIL [Suspect]
     Indication: OVARIAN CANCER RECURRENT
     Route: 042

REACTIONS (4)
  - CARBOHYDRATE ANTIGEN 125 INCREASED [None]
  - PALMAR-PLANTAR ERYTHRODYSAESTHESIA SYNDROME [None]
  - CARBOHYDRATE ANTIGEN 19-9 INCREASED [None]
  - STOMATITIS [None]
